FAERS Safety Report 20531990 (Version 1)
Quarter: 2022Q1

REPORT INFORMATION
  Report Type: Spontaneous
  Country: US (occurrence: US)
  Receive Date: 20220301
  Receipt Date: 20220301
  Transmission Date: 20220424
  Serious: Yes (Hospitalization)
  Sender: FDA-Public Use
  Company Number: US-PFIZER INC-202200285627

PATIENT
  Age: 81 Year
  Sex: Female
  Weight: 52.16 kg

DRUGS (1)
  1. CYTOMEL [Suspect]
     Active Substance: LIOTHYRONINE SODIUM
     Indication: Thyroid disorder
     Dosage: 25 UG

REACTIONS (6)
  - Implantable cardiac monitor insertion [Unknown]
  - Asthenia [Unknown]
  - Weight decreased [Unknown]
  - Illness [Unknown]
  - Depression [Unknown]
  - Lethargy [Unknown]
